FAERS Safety Report 19773983 (Version 1)
Quarter: 2021Q3

REPORT INFORMATION
  Report Type: Spontaneous
  Country: NL (occurrence: NL)
  Receive Date: 20210831
  Receipt Date: 20210831
  Transmission Date: 20211014
  Serious: Yes (Death, Other)
  Sender: FDA-Public Use
  Company Number: NL-SA-2021SA286228

PATIENT
  Age: 74 Year
  Sex: Female
  Weight: 67 kg

DRUGS (6)
  1. DOCETAXEL. [Suspect]
     Active Substance: DOCETAXEL
     Dosage: Q3W
     Route: 065
     Dates: start: 20210414
  2. CLEMASTINE [Concomitant]
     Active Substance: CLEMASTINE
     Dosage: GASTRIC JUICE RESISTANT CAPSULE, 40 MG (MILLIGRAMS)
     Dates: start: 20200518
  3. PERTUZUMAB. [Suspect]
     Active Substance: PERTUZUMAB
     Dosage: INJECTABLE DOSE
     Route: 065
     Dates: start: 20210414
  4. CALCIUM CARBONATE;COLECALCIFEROL [Concomitant]
     Active Substance: CALCIUM CARBONATE\CHOLECALCIFEROL
  5. PFIZER?BIONTECH COVID?19 VACCINE [Suspect]
     Active Substance: TOZINAMERAN
     Dosage: EVERY 3 WEEKS
     Route: 065
     Dates: start: 20210414
  6. ESOMEPRAZOLE. [Concomitant]
     Active Substance: ESOMEPRAZOLE MAGNESIUM
     Indication: ABDOMINAL PAIN UPPER
     Dosage: GASTRIC JUICE RESISTANT CAPSULE
     Dates: start: 20200518

REACTIONS (1)
  - Death [Fatal]

NARRATIVE: CASE EVENT DATE: 20210420
